FAERS Safety Report 7335452-0 (Version None)
Quarter: 2011Q1

REPORT INFORMATION
  Report Type: 
  Country: None (occurrence: None)
  Receive Date: 20110307
  Receipt Date: 20110304
  Transmission Date: 20110831
  Serious: Yes (Other)
  Sender: FDA-Public Use
  Company Number: US-BRISTOL-MYERS SQUIBB COMPANY-15575202

PATIENT
  Age: 77 Year
  Sex: Female

DRUGS (7)
  1. LEVOTHYROXINE SODIUM [Concomitant]
  2. PACLITAXEL [Suspect]
     Indication: BREAST CANCER
     Route: 042
  3. RANITIDINE [Concomitant]
     Indication: PREMEDICATION
  4. ASPIRIN [Concomitant]
  5. VITAMIN D [Concomitant]
  6. DIPHENHYDRAMINE [Concomitant]
     Indication: PREMEDICATION
  7. ALENDRONIC ACID [Concomitant]

REACTIONS (1)
  - PALMAR-PLANTAR ERYTHRODYSAESTHESIA SYNDROME [None]
